FAERS Safety Report 13277418 (Version 6)
Quarter: 2018Q2

REPORT INFORMATION
  Report Type: Spontaneous
  Country: JP (occurrence: JP)
  Receive Date: 20170228
  Receipt Date: 20180413
  Transmission Date: 20180711
  Serious: Yes (Hospitalization, Other)
  Sender: FDA-Public Use
  Company Number: JP-AMGEN-JPNSP2017028464

PATIENT
  Age: 49 Year
  Sex: Male

DRUGS (6)
  1. ATORVASTATIN [Concomitant]
     Active Substance: ATORVASTATIN
     Dosage: 40 MG, UNK
  2. EZETIMIBE. [Concomitant]
     Active Substance: EZETIMIBE
     Dosage: 10 UNK, UNK
  3. REPATHA [Suspect]
     Active Substance: EVOLOCUMAB
     Indication: TYPE IIA HYPERLIPIDAEMIA
     Dosage: 420 MG, UNK
     Route: 065
     Dates: start: 20160514
  4. ASPIRIN. [Concomitant]
     Active Substance: ASPIRIN
     Dosage: 100 MG, UNK
  5. PROBUCOL [Concomitant]
     Active Substance: PROBUCOL
     Dosage: 500 MG, UNK
  6. CILOSTAZOL. [Concomitant]
     Active Substance: CILOSTAZOL
     Dosage: 100 MG, UNK

REACTIONS (4)
  - Coronary artery stenosis [Unknown]
  - Heart valve stenosis [Recovered/Resolved]
  - Heart valve incompetence [Recovered/Resolved]
  - Low density lipoprotein increased [Recovering/Resolving]

NARRATIVE: CASE EVENT DATE: 20170119
